FAERS Safety Report 11270749 (Version 1)
Quarter: 2015Q3

REPORT INFORMATION
  Report Type: Report from Study
  Country: SA (occurrence: SA)
  Receive Date: 20150714
  Receipt Date: 20150714
  Transmission Date: 20151125
  Serious: Yes (Hospitalization, Other)
  Sender: FDA-Public Use
  Company Number: SA-PFIZER INC-2015229200

PATIENT
  Age: 30 Year
  Sex: Male

DRUGS (1)
  1. PHENYTOIN SODIUM. [Suspect]
     Active Substance: PHENYTOIN SODIUM
     Indication: SEIZURE
     Dosage: 600- 750 MG , DAILY FOR MORE THAN ONE WEEK

REACTIONS (4)
  - Cerebellar atrophy [Unknown]
  - Coma [Recovered/Resolved]
  - Hepatotoxicity [Recovered/Resolved]
  - Toxicity to various agents [Recovered/Resolved]
